FAERS Safety Report 17980705 (Version 5)
Quarter: 2021Q1

REPORT INFORMATION
  Report Type: Other
  Country: US (occurrence: US)
  Receive Date: 20200704
  Receipt Date: 20210325
  Transmission Date: 20210419
  Serious: Yes (Hospitalization, Other)
  Sender: FDA-Public Use
  Company Number: US-ROCHE-2635450

PATIENT
  Age: 83 Year
  Sex: Male
  Weight: 77.18 kg

DRUGS (6)
  1. VENCLEXTA [Suspect]
     Active Substance: VENETOCLAX
     Indication: CHRONIC LYMPHOCYTIC LEUKAEMIA
     Dosage: 21/MAY/2019, 02/APR/2020, 09/JUL/2020, 19/JUL/2020
     Route: 048
     Dates: start: 20190402
  2. OMEPRAZOLE. [Suspect]
     Active Substance: OMEPRAZOLE
     Indication: GASTRIC PH INCREASED
     Route: 065
  3. MELOXICAM. [Concomitant]
     Active Substance: MELOXICAM
  4. FINASTERIDE. [Concomitant]
     Active Substance: FINASTERIDE
  5. ROSUVASTATIN. [Concomitant]
     Active Substance: ROSUVASTATIN
  6. RITUXAN [Suspect]
     Active Substance: RITUXIMAB
     Indication: CHRONIC LYMPHOCYTIC LEUKAEMIA
     Route: 042
     Dates: start: 20190509

REACTIONS (11)
  - Diarrhoea [Recovered/Resolved]
  - Pain [Unknown]
  - Weight decreased [Recovered/Resolved]
  - Decreased appetite [Recovered/Resolved]
  - Nephrolithiasis [Recovered/Resolved]
  - Campylobacter test positive [Recovered/Resolved]
  - Stress [Unknown]
  - Nausea [Recovering/Resolving]
  - Cholecystitis infective [Recovered/Resolved]
  - Cholelithiasis [Recovered/Resolved]
  - Platelet disorder [Unknown]

NARRATIVE: CASE EVENT DATE: 20200614
